FAERS Safety Report 19849293 (Version 1)
Quarter: 2021Q3

REPORT INFORMATION
  Report Type: Spontaneous
  Country: HR (occurrence: HR)
  Receive Date: 20210917
  Receipt Date: 20210917
  Transmission Date: 20211014
  Serious: Yes (Other)
  Sender: FDA-Public Use
  Company Number: HR-MYLANLABS-2021M1009224

PATIENT
  Age: 64 Year
  Sex: Male

DRUGS (1)
  1. IBUPROFEN. [Suspect]
     Active Substance: IBUPROFEN
     Indication: ARTHRALGIA
     Dosage: UNK
     Route: 048

REACTIONS (17)
  - Rhabdomyolysis [Unknown]
  - Haematuria [Unknown]
  - Decreased vibratory sense [Unknown]
  - Gait disturbance [Unknown]
  - Pain in extremity [Unknown]
  - COVID-19 [Unknown]
  - Oedema [Unknown]
  - Cough [Unknown]
  - Proteinuria [Unknown]
  - Dyspnoea [Unknown]
  - Fatigue [Unknown]
  - Hyporeflexia [Unknown]
  - Microcytic anaemia [Unknown]
  - Muscle swelling [Unknown]
  - Paraparesis [Unknown]
  - Muscle tightness [Unknown]
  - Intentional overdose [Recovered/Resolved]
